FAERS Safety Report 20431555 (Version 1)
Quarter: 2022Q1

REPORT INFORMATION
  Report Type: Spontaneous
  Country: CN (occurrence: CN)
  Receive Date: 20220204
  Receipt Date: 20220204
  Transmission Date: 20220424
  Serious: Yes (Other)
  Sender: FDA-Public Use
  Company Number: CN-PFIZER INC-202200144669

PATIENT
  Age: 70 Year
  Sex: Female
  Weight: 50 kg

DRUGS (6)
  1. SOLU-MEDROL [Suspect]
     Active Substance: METHYLPREDNISOLONE SODIUM SUCCINATE
     Indication: Bronchiectasis
     Dosage: 40 MG, 2X/DAY (Q12H)
     Route: 041
     Dates: start: 20211219, end: 20211219
  2. SOLU-MEDROL [Suspect]
     Active Substance: METHYLPREDNISOLONE SODIUM SUCCINATE
     Indication: Antiinflammatory therapy
  3. COMPOUND METHOXYPHENAMINE [Concomitant]
     Indication: Cough
     Dosage: 2 DF, 3X/DAY
     Route: 048
     Dates: start: 20211216, end: 20211218
  4. MONTELUKAST SODIUM [Concomitant]
     Active Substance: MONTELUKAST SODIUM
     Indication: Bronchiectasis
     Dosage: 10 MG, 1X/DAY
     Route: 048
     Dates: start: 20211218, end: 20211230
  5. SODIUM CHLORIDE [Concomitant]
     Active Substance: SODIUM CHLORIDE
     Indication: Vehicle solution use
     Dosage: 40 ML, 2X/DAY (Q12H)
     Route: 041
     Dates: start: 20211219, end: 20211219
  6. THEOPHYLLINE [Concomitant]
     Active Substance: THEOPHYLLINE
     Indication: Bronchiectasis
     Dosage: 0.2 G, 2X/DAY
     Route: 048
     Dates: start: 20211218, end: 20211221

REACTIONS (5)
  - Joint stiffness [Recovering/Resolving]
  - Musculoskeletal stiffness [Recovering/Resolving]
  - Grip strength decreased [Recovering/Resolving]
  - Pain in extremity [Recovered/Resolved]
  - Off label use [Unknown]

NARRATIVE: CASE EVENT DATE: 20211219
